FAERS Safety Report 6730511-5 (Version None)
Quarter: 2010Q2

REPORT INFORMATION
  Report Type: 
  Country: None (occurrence: None)
  Receive Date: 20100514
  Receipt Date: 20100507
  Transmission Date: 20101027
  Serious: Yes (Death)
  Sender: FDA-Public Use
  Company Number: 2008US002023

PATIENT
  Age: 61 Year
  Sex: Male

DRUGS (1)
  1. AMBISOME [Suspect]
     Indication: PROPHYLAXIS
     Dosage: 3 MG/KG, 3XWEEKLY, IV NOS
     Route: 042
     Dates: start: 20080518, end: 20080608

REACTIONS (6)
  - ACUTE RESPIRATORY DISTRESS SYNDROME [None]
  - ASPERGILLUS TEST POSITIVE [None]
  - CARDIOPULMONARY FAILURE [None]
  - PNEUMONIA [None]
  - PNEUMONITIS [None]
  - POST PROCEDURAL COMPLICATION [None]
